FAERS Safety Report 7287717-9 (Version None)
Quarter: 2011Q1

REPORT INFORMATION
  Report Type: 
  Country: None (occurrence: None)
  Receive Date: 20110211
  Receipt Date: 20100413
  Transmission Date: 20110831
  Serious: No
  Sender: FDA-Public Use
  Company Number: US-BAYER-2010-009286

PATIENT
  Sex: Female

DRUGS (1)
  1. MIRENA [Suspect]
     Dosage: 20 MCG/24HR, CONT
     Route: 015
     Dates: start: 20090201

REACTIONS (8)
  - FATIGUE [None]
  - DECREASED APPETITE [None]
  - PAIN [None]
  - BREAST ENGORGEMENT [None]
  - AMENORRHOEA [None]
  - MOOD SWINGS [None]
  - WEIGHT DECREASED [None]
  - VAGINAL HAEMORRHAGE [None]
